FAERS Safety Report 5509056-6 (Version None)
Quarter: 2007Q4

REPORT INFORMATION
  Report Type: 
  Country: None (occurrence: None)
  Receive Date: 20071031
  Receipt Date: 20070710
  Transmission Date: 20080405
  Serious: Yes (Other)
  Sender: FDA-Public Use
  Company Number: 200710400BWH

PATIENT
  Age: 54 Year
  Sex: Female

DRUGS (6)
  1. NEXAVAR [Suspect]
     Indication: CARCINOID TUMOUR OF THE SMALL BOWEL
     Dosage: 400 MG, BID, ORAL 200 MG, BID, ORAL
     Route: 048
     Dates: start: 20061001, end: 20061120
  2. NEXAVAR [Suspect]
     Indication: METASTASES TO LIVER
     Dosage: 400 MG, BID, ORAL 200 MG, BID, ORAL
     Route: 048
     Dates: start: 20061001, end: 20061120
  3. NEXAVAR [Suspect]
     Indication: CARCINOID TUMOUR OF THE SMALL BOWEL
     Dosage: 400 MG, BID, ORAL 200 MG, BID, ORAL
     Route: 048
     Dates: start: 20060101
  4. NEXAVAR [Suspect]
     Indication: METASTASES TO LIVER
     Dosage: 400 MG, BID, ORAL 200 MG, BID, ORAL
     Route: 048
     Dates: start: 20060101
  5. NEXAVAR [Suspect]
     Indication: CARCINOID TUMOUR OF THE SMALL BOWEL
     Dosage: 400 MG, BID, ORAL 200 MG, BID, ORAL
     Route: 048
     Dates: start: 20060901
  6. NEXAVAR [Suspect]
     Indication: METASTASES TO LIVER
     Dosage: 400 MG, BID, ORAL 200 MG, BID, ORAL
     Route: 048
     Dates: start: 20060901

REACTIONS (6)
  - ALOPECIA [None]
  - BLOOD PRESSURE INCREASED [None]
  - DERMAL CYST [None]
  - PALMAR-PLANTAR ERYTHRODYSAESTHESIA SYNDROME [None]
  - RASH [None]
  - STOMATITIS [None]
